FAERS Safety Report 10154447 (Version 2)
Quarter: 2014Q2

REPORT INFORMATION
  Report Type: Spontaneous
  Country: TW (occurrence: TW)
  Receive Date: 20140506
  Receipt Date: 20140509
  Transmission Date: 20141212
  Serious: Yes (Other)
  Sender: FDA-Public Use
  Company Number: TW-ROCHE-1393120

PATIENT
  Age: 60 Year
  Sex: Female

DRUGS (17)
  1. LUCENTIS [Suspect]
     Indication: PRODUCT USED FOR UNKNOWN INDICATION
     Route: 050
     Dates: start: 20120416
  2. LUCENTIS [Suspect]
     Route: 050
     Dates: start: 20120514
  3. LUCENTIS [Suspect]
     Route: 050
     Dates: start: 20120611
  4. LUCENTIS [Suspect]
     Route: 050
     Dates: start: 20130429
  5. LUCENTIS [Suspect]
     Route: 050
     Dates: start: 20130530
  6. LUCENTIS [Suspect]
     Route: 050
     Dates: start: 20130708
  7. AVASTIN [Suspect]
     Indication: PRODUCT USED FOR UNKNOWN INDICATION
     Route: 050
     Dates: start: 20120709
  8. AVASTIN [Suspect]
     Route: 050
     Dates: start: 20120809
  9. AVASTIN [Suspect]
     Route: 050
     Dates: start: 20120917
  10. AVASTIN [Suspect]
     Route: 050
     Dates: start: 20121022
  11. AVASTIN [Suspect]
     Route: 050
     Dates: start: 20121126
  12. AVASTIN [Suspect]
     Route: 050
     Dates: start: 20121227
  13. AVASTIN [Suspect]
     Route: 050
     Dates: start: 20130128
  14. AVASTIN [Suspect]
     Route: 050
     Dates: start: 20130401
  15. AVASTIN [Suspect]
     Route: 050
     Dates: start: 20130902
  16. AVASTIN [Suspect]
     Route: 050
     Dates: start: 20131028
  17. AVASTIN [Suspect]
     Route: 050
     Dates: start: 20140120

REACTIONS (6)
  - Macular degeneration [Unknown]
  - Retinal exudates [Unknown]
  - Retinal haemorrhage [Recovering/Resolving]
  - Ocular vascular disorder [Unknown]
  - Retinal neovascularisation [Unknown]
  - Retinal vascular disorder [Unknown]
